FAERS Safety Report 21987596 (Version 2)
Quarter: 2023Q4

REPORT INFORMATION
  Report Type: Report from Study
  Country: BR (occurrence: BR)
  Receive Date: 20230214
  Receipt Date: 20231028
  Transmission Date: 20240110
  Serious: Yes (Hospitalization, Other)
  Sender: FDA-Public Use
  Company Number: BR-CELLTRION INC.-2023BR003013

PATIENT

DRUGS (2)
  1. INFLIXIMAB [Suspect]
     Active Substance: INFLIXIMAB
     Indication: Crohn^s disease
     Dosage: 4 AMPOULES EVERY 2 MONTHS
     Route: 042
     Dates: start: 20220922
  2. AZATHIOPRINE [Concomitant]
     Active Substance: AZATHIOPRINE
     Indication: Crohn^s disease
     Dosage: 1 PILL A DAY, STARTED 1 YEAR AGO
     Route: 048

REACTIONS (3)
  - Surgery [Recovered/Resolved]
  - Dizziness [Recovered/Resolved]
  - Intentional dose omission [Recovered/Resolved]
